FAERS Safety Report 20709888 (Version 1)
Quarter: 2022Q2

REPORT INFORMATION
  Report Type: Spontaneous
  Country: JP (occurrence: None)
  Receive Date: 20220414
  Receipt Date: 20220414
  Transmission Date: 20220720
  Serious: Yes (Other)
  Sender: FDA-Public Use
  Company Number: 2022A134612

PATIENT
  Age: 66 Year
  Sex: Male

DRUGS (3)
  1. SEROQUEL [Suspect]
     Active Substance: QUETIAPINE FUMARATE
     Indication: Product used for unknown indication
     Dosage: 100 MG/DAY, UNKNOWN FREQ.
     Route: 048
  2. PREDONINE [Suspect]
     Active Substance: PREDNISOLONE
     Indication: Vogt-Koyanagi-Harada disease
     Dosage: UNK UNK, UNKNOWN FREQ.
     Route: 048
  3. SITAGLIPTIN [Suspect]
     Active Substance: SITAGLIPTIN
     Indication: Type 2 diabetes mellitus
     Dosage: UNK UNK, UNKNOWN FREQ.
     Route: 065

REACTIONS (3)
  - Type 2 diabetes mellitus [Recovered/Resolved]
  - Weight increased [Unknown]
  - Contraindicated product administered [Unknown]

NARRATIVE: CASE EVENT DATE: 20220307
